FAERS Safety Report 17089841 (Version 5)
Quarter: 2020Q1

REPORT INFORMATION
  Report Type: Spontaneous
  Country: PT (occurrence: PT)
  Receive Date: 20191128
  Receipt Date: 20200307
  Transmission Date: 20200409
  Serious: Yes (Life-Threatening, Hospitalization, Other)
  Sender: FDA-Public Use
  Company Number: PT-AUROBINDO-AUR-APL-2019-064789

PATIENT
  Age: 58 Year
  Sex: Male

DRUGS (5)
  1. OLMESARTAN MEDOXOMILO/HIDROCHLOROTHIAZIDE FILM COATED TABLET 20/12.5MG [Suspect]
     Active Substance: HYDROCHLOROTHIAZIDE\OLMESARTAN MEDOXOMIL
     Indication: ESSENTIAL HYPERTENSION
     Dosage: 1 DOSAGE FORM, ONCE A DAY
     Route: 048
  2. SIMVASTATIN. [Suspect]
     Active Substance: SIMVASTATIN
     Indication: DYSLIPIDAEMIA
     Dosage: 10 MILLIGRAM
     Route: 065
  3. OLMESARTAN MEDOXOMILO/HIDROCHLOROTHIAZIDE FILM COATED TABLET 20/12.5MG [Suspect]
     Active Substance: HYDROCHLOROTHIAZIDE\OLMESARTAN MEDOXOMIL
     Dosage: UNK, 20/12.5MG
     Route: 065
  4. ATORVASTATIN 10 MG FILM COATED TABLET [Suspect]
     Active Substance: ATORVASTATIN
     Indication: DYSLIPIDAEMIA
     Dosage: 10 MILLIGRAM, ONCE A DAY, 1.5 YEARS
     Route: 048
  5. LEVOTHYROXINE. [Concomitant]
     Active Substance: LEVOTHYROXINE
     Indication: HYPOTHYROIDISM
     Dosage: 100 MICROGRAM, ONCE A DAY
     Route: 048

REACTIONS (4)
  - Muscular weakness [Recovered/Resolved]
  - Immune-mediated myositis [Recovered/Resolved]
  - Weight decreased [Recovered/Resolved]
  - Necrotising myositis [Recovering/Resolving]
